FAERS Safety Report 8995517 (Version 1)
Quarter: 2013Q1

REPORT INFORMATION
  Report Type: Spontaneous
  Country: US (occurrence: US)
  Receive Date: 20130103
  Receipt Date: 20130103
  Transmission Date: 20140127
  Serious: No
  Sender: FDA-Public Use
  Company Number: US-ABBOTT-12P-163-0907429-00

PATIENT
  Sex: Female
  Weight: 52.66 kg

DRUGS (5)
  1. SYNTHROID [Suspect]
     Indication: THYROIDECTOMY
     Dates: start: 2009
  2. SYNTHROID [Suspect]
     Indication: THYROID CANCER
     Route: 048
     Dates: start: 201111, end: 201202
  3. SYNTHROID [Suspect]
     Dates: start: 201202
  4. SYNTHROID [Suspect]
     Dates: start: 201101, end: 201111
  5. LEXIPRO [Concomitant]
     Indication: PRODUCT USED FOR UNKNOWN INDICATION

REACTIONS (11)
  - Dizziness [Not Recovered/Not Resolved]
  - Confusional state [Not Recovered/Not Resolved]
  - Irritability [Not Recovered/Not Resolved]
  - Mental impairment [Not Recovered/Not Resolved]
  - Weight decreased [Not Recovered/Not Resolved]
  - Memory impairment [Unknown]
  - Agitation [Unknown]
  - Insomnia [Unknown]
  - Dizziness [Unknown]
  - Headache [Unknown]
  - Blood thyroid stimulating hormone increased [Unknown]
